FAERS Safety Report 24437092 (Version 4)
Quarter: 2024Q4

REPORT INFORMATION
  Report Type: Spontaneous
  Country: FR (occurrence: FR)
  Receive Date: 20241015
  Receipt Date: 20241130
  Transmission Date: 20250115
  Serious: Yes (Hospitalization, Other)
  Sender: JOHNSON AND JOHNSON
  Company Number: FR-AMGEN-FRACT2024183334

PATIENT
  Age: 70 Year
  Sex: Male
  Weight: 85 kg

DRUGS (6)
  1. DARZALEX [Suspect]
     Active Substance: DARATUMUMAB
     Indication: Plasma cell myeloma refractory
     Dosage: 1800 MILLIGRAM, Q4WK
     Route: 058
     Dates: start: 20230713, end: 20240418
  2. CARFILZOMIB [Suspect]
     Active Substance: CARFILZOMIB
     Indication: Plasma cell myeloma refractory
     Dosage: 56 MILLIGRAM/SQ. METER
     Route: 065
     Dates: start: 20240722, end: 20240812
  3. POMALIDOMIDE [Suspect]
     Active Substance: POMALIDOMIDE
     Indication: Plasma cell myeloma refractory
     Dosage: 4 MILLIGRAM, QD
     Route: 048
     Dates: start: 20230713, end: 20240508
  4. DEXAMETHASONE [Suspect]
     Active Substance: DEXAMETHASONE
     Indication: Plasma cell myeloma refractory
     Dosage: 40 MILLIGRAM, QWK
     Route: 048
     Dates: start: 20230713, end: 20231207
  5. CYCLOPHOSPHAMIDE [Suspect]
     Active Substance: CYCLOPHOSPHAMIDE
     Indication: Plasma cell myeloma refractory
     Dosage: UNK
     Route: 065
     Dates: start: 20240722, end: 20240812
  6. SODIUM CHLORIDE [Concomitant]
     Active Substance: SODIUM CHLORIDE
     Indication: Product used for unknown indication
     Dosage: UNK
     Dates: start: 20230726, end: 20240730

REACTIONS (4)
  - Dilated cardiomyopathy [Not Recovered/Not Resolved]
  - Albuminuria [Recovered/Resolved]
  - Blood disorder [Recovered/Resolved]
  - Off label use [Unknown]

NARRATIVE: CASE EVENT DATE: 20240101
